FAERS Safety Report 4376302-4 (Version None)
Quarter: 2004Q2

REPORT INFORMATION
  Report Type: 
  Country: None (occurrence: None)
  Receive Date: 20040608
  Receipt Date: 20030429
  Transmission Date: 20050107
  Serious: Yes (Hospitalization)
  Sender: FDA-Public Use
  Company Number: 200311479BCC

PATIENT
  Age: 20 Year
  Sex: Female

DRUGS (2)
  1. ALEVE [Suspect]
     Dosage: 5280 MG, ONCE, ORAL
     Route: 048
     Dates: start: 20030427
  2. ACETAMINOPHEN [Suspect]
     Dosage: 8000 MG, ONCE, ORAL
     Route: 048
     Dates: start: 20030427

REACTIONS (1)
  - OVERDOSE [None]
